FAERS Safety Report 4481040-3 (Version None)
Quarter: 2004Q4

REPORT INFORMATION
  Report Type: 
  Country: None (occurrence: None)
  Receive Date: 20041021
  Receipt Date: 20041006
  Transmission Date: 20050328
  Serious: Yes (Hospitalization)
  Sender: FDA-Public Use
  Company Number: FR-JNJFOC-20041001979

PATIENT
  Age: 90 Year
  Sex: Female

DRUGS (9)
  1. ZALDIAR [Suspect]
     Indication: DRUG USE FOR UNKNOWN INDICATION
     Dosage: 1 TO 3 TABLETS DAILY.
     Route: 049
  2. CYCLE 3 [Suspect]
     Indication: DRUG USE FOR UNKNOWN INDICATION
     Route: 049
  3. VASTAREL [Suspect]
     Indication: DRUG USE FOR UNKNOWN INDICATION
     Route: 049
  4. LIPANTHYL [Suspect]
     Indication: DRUG USE FOR UNKNOWN INDICATION
     Route: 049
  5. PANFUREX [Concomitant]
  6. MOTILIUM [Concomitant]
  7. FORLAX [Concomitant]
  8. NORMACOL [Concomitant]
  9. NORMACOL [Concomitant]

REACTIONS (5)
  - ABDOMINAL DISTENSION [None]
  - AORTIC DILATATION [None]
  - CONSTIPATION [None]
  - DIARRHOEA [None]
  - DRUG INTERACTION [None]
